FAERS Safety Report 8351909-8 (Version None)
Quarter: 2012Q2

REPORT INFORMATION
  Report Type: 
  Country: None (occurrence: None)
  Receive Date: 20120511
  Receipt Date: 20120507
  Transmission Date: 20120825
  Serious: No
  Sender: FDA-Public Use
  Company Number: US-PFIZER INC-2012111891

PATIENT
  Sex: Female

DRUGS (1)
  1. NAVANE [Suspect]
     Dosage: UNK

REACTIONS (4)
  - INSOMNIA [None]
  - ABNORMAL DREAMS [None]
  - ACTIVITIES OF DAILY LIVING IMPAIRED [None]
  - TACHYPHRENIA [None]
